FAERS Safety Report 20071688 (Version 4)
Quarter: 2022Q2

REPORT INFORMATION
  Report Type: Spontaneous
  Country: JP (occurrence: JP)
  Receive Date: 20211116
  Receipt Date: 20220610
  Transmission Date: 20220720
  Serious: Yes (Life-Threatening, Hospitalization, Other)
  Sender: FDA-Public Use
  Company Number: JP-ASTELLAS-2021JP021956

PATIENT
  Age: 73 Year
  Sex: Male
  Weight: 60 kg

DRUGS (1)
  1. XTANDI [Suspect]
     Active Substance: ENZALUTAMIDE
     Indication: Hormone-refractory prostate cancer
     Route: 048
     Dates: start: 20170601, end: 20170711

REACTIONS (3)
  - Anaemia [Recovering/Resolving]
  - Blood bilirubin increased [Recovering/Resolving]
  - Serum ferritin increased [Not Recovered/Not Resolved]

NARRATIVE: CASE EVENT DATE: 20170711
